FAERS Safety Report 4373702-3 (Version None)
Quarter: 2004Q1

REPORT INFORMATION
  Report Type: 
  Country: None (occurrence: None)
  Receive Date: 20040305
  Receipt Date: 20040106
  Transmission Date: 20041129
  Serious: Yes (Other)
  Sender: FDA-Public Use
  Company Number: 2004UW00237

PATIENT

DRUGS (1)
  1. CRESTOR [Suspect]

REACTIONS (1)
  - CREATINE PHOSPHOKINASE DECREASED [None]
